FAERS Safety Report 12088959 (Version 2)
Quarter: 2016Q1

REPORT INFORMATION
  Report Type: Spontaneous
  Country: US (occurrence: US)
  Receive Date: 20160218
  Receipt Date: 20160219
  Transmission Date: 20160526
  Serious: No
  Sender: FDA-Public Use
  Company Number: US-TEVA-591002USA

PATIENT

DRUGS (1)
  1. METHYLPREDNISOLONE. [Suspect]
     Active Substance: METHYLPREDNISOLONE
     Indication: COUGH
     Route: 065

REACTIONS (4)
  - Fatigue [Unknown]
  - Cough [Unknown]
  - Nausea [Unknown]
  - Pain [Unknown]
